FAERS Safety Report 21402430 (Version 2)
Quarter: 2022Q4

REPORT INFORMATION
  Report Type: Spontaneous
  Country: US (occurrence: US)
  Receive Date: 20221003
  Receipt Date: 20221004
  Transmission Date: 20230113
  Serious: No
  Sender: FDA-Public Use
  Company Number: US-PFIZER INC-202201197404

PATIENT
  Age: 54 Year
  Sex: Female
  Weight: 86.18 kg

DRUGS (2)
  1. PAXLOVID [Suspect]
     Active Substance: NIRMATRELVIR\RITONAVIR
     Indication: COVID-19 treatment
     Dosage: UNK, 2X/DAY (TOOK 3 PILLS TWICE A DAY FOR 5 DAYS)
     Dates: start: 20220915, end: 20220921
  2. ALBUTEROL SULFATE [Concomitant]
     Active Substance: ALBUTEROL SULFATE
     Indication: Cough
     Dosage: 18 G
     Dates: start: 20220917

REACTIONS (8)
  - Incorrect product administration duration [Unknown]
  - Urticaria [Not Recovered/Not Resolved]
  - Formication [Unknown]
  - Dyspnoea [Unknown]
  - Anxiety [Unknown]
  - Rash [Unknown]
  - Peripheral swelling [Unknown]
  - Feeling cold [Unknown]

NARRATIVE: CASE EVENT DATE: 20220923
